FAERS Safety Report 6969521-1 (Version None)
Quarter: 2010Q3

REPORT INFORMATION
  Report Type: 
  Country: None (occurrence: None)
  Receive Date: 20100907
  Receipt Date: 20100907
  Transmission Date: 20110219
  Serious: Yes (Other)
  Sender: FDA-Public Use
  Company Number: None

PATIENT
  Age: 32 Year
  Sex: Female
  Weight: 58.9676 kg

DRUGS (2)
  1. BUPROPION HCL [Suspect]
     Indication: ATTENTION DEFICIT/HYPERACTIVITY DISORDER
     Dosage: 150MG BID PO
     Route: 048
     Dates: start: 20100818, end: 20100903
  2. BUPROPION HCL [Suspect]
     Indication: DEPRESSION
     Dosage: 150MG BID PO
     Route: 048
     Dates: start: 20100818, end: 20100903

REACTIONS (2)
  - ANGER [None]
  - ANXIETY [None]
